FAERS Safety Report 8497233 (Version 4)
Quarter: 2012Q4

REPORT INFORMATION
  Report Type: Report from Study
  Country: FR (occurrence: FR)
  Receive Date: 20120406
  Receipt Date: 20120830
  Transmission Date: 20130627
  Serious: Yes (Hospitalization)
  Sender: FDA-Public Use
  Company Number: FR-JNJFOC-20120314263

PATIENT
  Age: 16 Year
  Sex: Male
  Weight: 51.9 kg

DRUGS (1)
  1. REMICADE [Suspect]
     Indication: CROHN^S DISEASE
     Route: 042
     Dates: start: 20101021

REACTIONS (1)
  - Crohn^s disease [Recovered/Resolved with Sequelae]
